FAERS Safety Report 22541188 (Version 1)
Quarter: 2023Q2

REPORT INFORMATION
  Report Type: Spontaneous
  Country: IT (occurrence: IT)
  Receive Date: 20230609
  Receipt Date: 20230609
  Transmission Date: 20230721
  Serious: Yes (Other)
  Sender: FDA-Public Use
  Company Number: IT-SUN PHARMACEUTICAL INDUSTRIES LTD-2023RR-393381

PATIENT
  Age: 83 Year
  Sex: Male

DRUGS (2)
  1. SONIDEGIB [Suspect]
     Active Substance: SONIDEGIB
     Indication: Squamous cell carcinoma of skin
     Dosage: SYSTEMIC TREATMENT
     Route: 065
  2. CEMIPLIMAB [Concomitant]
     Active Substance: CEMIPLIMAB
     Indication: Squamous cell carcinoma of skin
     Dosage: UNK
     Route: 065

REACTIONS (4)
  - Therapeutic product effect incomplete [Unknown]
  - Muscle spasms [Unknown]
  - Dysgeusia [Unknown]
  - Asthenia [Unknown]
